FAERS Safety Report 4860795-X (Version None)
Quarter: 2005Q4

REPORT INFORMATION
  Report Type: 
  Country: None (occurrence: None)
  Receive Date: 20051220
  Receipt Date: 20051206
  Transmission Date: 20060501
  Serious: Yes (Disabling)
  Sender: FDA-Public Use
  Company Number: GBWYE207806DEC05

PATIENT
  Age: 50 Year
  Sex: Female
  Weight: 74.9 kg

DRUGS (8)
  1. ENBREL [Suspect]
     Indication: RHEUMATOID ARTHRITIS
     Route: 058
     Dates: start: 20050811, end: 20051111
  2. HYDROXYCHLOROQUINE SULFATE [Concomitant]
     Indication: RHEUMATOID ARTHRITIS
     Dosage: 200/400MG ALTERNATE DAYS
     Route: 048
  3. DIHYDROCODEINE [Concomitant]
     Indication: ANALGESIC EFFECT
     Dosage: 30MG, FREQUENCY UNKNOWN
     Route: 048
  4. LOSEC [Concomitant]
     Indication: PROPHYLAXIS AGAINST GASTROINTESTINAL ULCER
     Dosage: 40MG, FREQUENCY UNKNOWN
     Route: 048
  5. TEMAZEPAM [Concomitant]
     Dosage: 20MG, FREQUENCY UNKNOWN
     Route: 048
  6. ATENOLOL [Concomitant]
     Dosage: 50MG, FREQUENCY UNKNOWN
     Route: 048
  7. SIMVASTATIN [Concomitant]
     Indication: BLOOD CHOLESTEROL INCREASED
     Dosage: 40MG, FREQUENCY UNKNOWN
  8. PERINDOPRIL [Concomitant]
     Dosage: 1 TABLET, FREQUENCY UNKNOWN

REACTIONS (1)
  - CHEST DISCOMFORT [None]
